FAERS Safety Report 21941404 (Version 1)
Quarter: 2023Q1

REPORT INFORMATION
  Report Type: Report from Study
  Country: US (occurrence: US)
  Receive Date: 20230202
  Receipt Date: 20230202
  Transmission Date: 20230417
  Serious: No
  Sender: FDA-Public Use
  Company Number: US-EXELIXIS-CABO-22054366

PATIENT
  Sex: Female

DRUGS (7)
  1. CABOMETYX [Suspect]
     Active Substance: CABOZANTINIB S-MALATE
     Indication: Renal cell carcinoma
     Dosage: 40 MG, QD
     Dates: start: 20220630, end: 20220816
  2. LEVOTHYROXINE [Concomitant]
     Active Substance: LEVOTHYROXINE
  3. TRAZODONE [Concomitant]
     Active Substance: TRAZODONE HYDROCHLORIDE
  4. GABAPENTIN [Concomitant]
     Active Substance: GABAPENTIN
  5. CITALOPRAM [Concomitant]
     Active Substance: CITALOPRAM HYDROBROMIDE
  6. HYDROCORTISONE [Concomitant]
     Active Substance: HYDROCORTISONE
  7. AMLODIPINE [Concomitant]
     Active Substance: AMLODIPINE BESYLATE

REACTIONS (9)
  - Blister [Recovered/Resolved]
  - Oropharyngeal pain [Recovering/Resolving]
  - Glossitis [Recovering/Resolving]
  - Throat irritation [Recovering/Resolving]
  - Abdominal pain upper [Unknown]
  - Fatigue [Unknown]
  - Headache [Unknown]
  - Blood pressure increased [Recovering/Resolving]
  - Cough [Not Recovered/Not Resolved]
